FAERS Safety Report 15387566 (Version 2)
Quarter: 2019Q1

REPORT INFORMATION
  Report Type: Spontaneous
  Country: JP (occurrence: JP)
  Receive Date: 20180914
  Receipt Date: 20190307
  Transmission Date: 20190417
  Serious: Yes (Death, Hospitalization)
  Sender: FDA-Public Use
  Company Number: JP-COLLEGIUM PHARMACEUTICAL, INC.-JP-2018COL014196

PATIENT
  Age: 80 Year
  Sex: Male

DRUGS (14)
  1. TAPENTADOL EXTENDED RELEASE [Suspect]
     Active Substance: TAPENTADOL
     Dosage: 250 MG, QD
     Route: 048
     Dates: start: 20170813, end: 20170813
  2. HYDROCORTISONE SODIUM SUCCINATE [Suspect]
     Active Substance: HYDROCORTISONE SODIUM SUCCINATE
     Indication: PRODUCT USED FOR UNKNOWN INDICATION
     Dosage: 100 MG, QD
  3. MS CONTIN [Concomitant]
     Active Substance: MORPHINE SULFATE
     Indication: PRODUCT USED FOR UNKNOWN INDICATION
     Dosage: 20 MG, QD
     Route: 058
     Dates: start: 20170728
  4. MEROPENEM. [Concomitant]
     Active Substance: MEROPENEM
     Indication: PNEUMONIA KLEBSIELLA
     Dosage: 3 G, QD
     Route: 041
     Dates: start: 20170810, end: 20170816
  5. MORPHINE HYDROCHLORIDE [Suspect]
     Active Substance: MORPHINE HYDROCHLORIDE
     Indication: PRODUCT USED FOR UNKNOWN INDICATION
     Dosage: 5 MG, QD
  6. FENTOS [Concomitant]
     Active Substance: FENTANYL
     Indication: PRODUCT USED FOR UNKNOWN INDICATION
     Dosage: 1 MG, PER DOSE
     Dates: start: 20170801, end: 20170802
  7. TAPENTADOL EXTENDED RELEASE [Suspect]
     Active Substance: TAPENTADOL
     Dosage: 100 MG, QD
     Route: 048
     Dates: start: 20170807, end: 20170809
  8. TAPENTADOL EXTENDED RELEASE [Suspect]
     Active Substance: TAPENTADOL
     Dosage: 150 MG, QD
     Route: 048
     Dates: start: 20170810, end: 20170812
  9. TAPENTADOL EXTENDED RELEASE [Suspect]
     Active Substance: TAPENTADOL
     Dosage: 250 MG, QD
     Route: 048
     Dates: start: 20170815
  10. TAPENTADOL EXTENDED RELEASE [Suspect]
     Active Substance: TAPENTADOL
     Indication: CANCER PAIN
     Dosage: 50 MG, QD
     Route: 048
     Dates: start: 20170803, end: 20170806
  11. TAPENTADOL EXTENDED RELEASE [Suspect]
     Active Substance: TAPENTADOL
     Dosage: 100 MG, QD
     Route: 048
     Dates: end: 20171104
  12. MS CONTIN [Concomitant]
     Active Substance: MORPHINE SULFATE
     Dosage: 24 MG, QD
     Dates: start: 20171113
  13. TAPENTADOL EXTENDED RELEASE [Suspect]
     Active Substance: TAPENTADOL
     Dosage: 350 MG, QD
     Route: 048
     Dates: start: 20170814, end: 20170814
  14. CETUXIMAB. [Concomitant]
     Active Substance: CETUXIMAB
     Indication: PRODUCT USED FOR UNKNOWN INDICATION
     Dosage: UNK
     Dates: start: 20170825

REACTIONS (7)
  - Abdominal pain lower [Recovered/Resolved]
  - Pyrexia [Recovered/Resolved]
  - Dizziness [Recovered/Resolved]
  - Malignant neoplasm progression [Fatal]
  - Nausea [Recovered/Resolved]
  - Rash pruritic [Recovered/Resolved]
  - Intestinal obstruction [Recovered/Resolved]

NARRATIVE: CASE EVENT DATE: 201601
